FAERS Safety Report 4652552-4 (Version None)
Quarter: 2005Q2

REPORT INFORMATION
  Report Type: 
  Country: None (occurrence: None)
  Receive Date: 20050502
  Receipt Date: 20050420
  Transmission Date: 20051028
  Serious: Yes (Life-Threatening)
  Sender: FDA-Public Use
  Company Number: EM2005-0190

PATIENT
  Age: 40 Year
  Sex: Male
  Weight: 62 kg

DRUGS (8)
  1. MACROLIN [Suspect]
     Indication: HIV INFECTION
     Dosage: 4.5 MIU, BID, SUBCUTANEOUS
     Route: 058
     Dates: start: 20041020, end: 20041024
  2. MACROLIN [Suspect]
     Indication: HIV INFECTION
     Dosage: 4.5 MIU, BID, SUBCUTANEOUS
     Route: 058
     Dates: start: 20041206, end: 20041210
  3. MACROLIN [Suspect]
     Indication: HIV INFECTION
     Dosage: 4.5 MIU, BID, SUBCUTANEOUS
     Route: 058
     Dates: start: 20050124, end: 20050128
  4. MACROLIN [Suspect]
     Indication: HIV INFECTION
     Dosage: 4.5 MIU, BID, SUBCUTANEOUS
     Route: 058
     Dates: start: 20050307, end: 20050311
  5. COMBIVIR [Concomitant]
  6. NORVIR [Concomitant]
  7. BACTRIM [Concomitant]
  8. REYATAZ [Concomitant]

REACTIONS (1)
  - MALIGNANT PLEURAL EFFUSION [None]
